FAERS Safety Report 12083256 (Version 1)
Quarter: 2016Q1

REPORT INFORMATION
  Report Type: Spontaneous
  Country: US (occurrence: None)
  Receive Date: 20160216
  Receipt Date: 20160216
  Transmission Date: 20160526
  Serious: Yes (Disabling)
  Sender: FDA-Public Use
  Company Number: None

PATIENT
  Age: 24 Year
  Sex: Male
  Weight: 72.58 kg

DRUGS (5)
  1. QNASL [Suspect]
     Active Substance: BECLOMETHASONE DIPROPIONATE
     Indication: RHINITIS ALLERGIC
     Dosage: STRENGTH: 80 MCG?DOSE: 2 SPRAYS IN EACH NOSTRIL ONCE DAILY INTRANASALLY
     Route: 045
     Dates: start: 20151019, end: 20151103
  2. FLONASE OTC [Concomitant]
  3. QNASL OTC [Concomitant]
  4. SPIRULINA [Concomitant]
     Active Substance: SPIRULINA
  5. CULTURELLE PROBIOTICS [Concomitant]

REACTIONS (1)
  - Hyposmia [None]

NARRATIVE: CASE EVENT DATE: 20151103
